FAERS Safety Report 11990781 (Version 1)
Quarter: 2016Q1

REPORT INFORMATION
  Report Type: Spontaneous
  Country: US (occurrence: US)
  Receive Date: 20160202
  Receipt Date: 20160202
  Transmission Date: 20160526
  Serious: No
  Sender: FDA-Public Use
  Company Number: US-GALDERMA-US15008745

PATIENT
  Sex: Male

DRUGS (3)
  1. UNSPECIFIED FACIAL WASH [Concomitant]
     Route: 061
  2. EPIDUO [Suspect]
     Active Substance: ADAPALENE\BENZOYL PEROXIDE
     Route: 061
  3. UNSPECIFIED MOISTURIZER [Concomitant]
     Active Substance: UNSPECIFIED INGREDIENT
     Route: 061

REACTIONS (2)
  - Erythema [Unknown]
  - Acne [Unknown]
